FAERS Safety Report 12516741 (Version 1)
Quarter: 2016Q2

REPORT INFORMATION
  Report Type: Report from Study
  Country: FR (occurrence: FR)
  Receive Date: 20160630
  Receipt Date: 20160630
  Transmission Date: 20160815
  Serious: Yes (Hospitalization)
  Sender: FDA-Public Use
  Company Number: FR-ROCHE-1363278

PATIENT
  Sex: Female

DRUGS (22)
  1. RITUXIMAB [Suspect]
     Active Substance: RITUXIMAB
     Dosage: 1G D1 ON 30/SEP/2009 AND 1G D15 ON 14/OCT/2009
     Route: 065
  2. RITUXIMAB [Suspect]
     Active Substance: RITUXIMAB
     Dosage: 1G D1 ON 13/MAY/2013 AND 1G D15 ON 27/MAY/2013
     Route: 065
  3. METHOTREXATE [Concomitant]
     Active Substance: METHOTREXATE
     Route: 065
     Dates: start: 20140825, end: 20140908
  4. RITUXIMAB [Suspect]
     Active Substance: RITUXIMAB
     Indication: RHEUMATOID ARTHRITIS
     Dosage: 1G D1 ON 03/DEC/2008 AND 1G D15 ON 19/DEC/2008
     Route: 065
  5. RITUXIMAB [Suspect]
     Active Substance: RITUXIMAB
     Dosage: 1G D1 ON 25/AUG/2014 AND 1G D15 ON 08/SEP/2014
     Route: 065
  6. METHOTREXATE [Concomitant]
     Active Substance: METHOTREXATE
     Route: 065
     Dates: start: 20120220, end: 20120305
  7. LEFLUNOMIDE. [Concomitant]
     Active Substance: LEFLUNOMIDE
     Route: 065
     Dates: start: 20131125, end: 20131209
  8. RITUXIMAB [Suspect]
     Active Substance: RITUXIMAB
     Dosage: 1G D1 ON 01/JUN/2014 AND 1G D15 ON 15/JUN/2014
     Route: 065
  9. METHOTREXATE [Concomitant]
     Active Substance: METHOTREXATE
     Route: 065
     Dates: start: 20081203, end: 20081219
  10. METHOTREXATE [Concomitant]
     Active Substance: METHOTREXATE
     Route: 065
     Dates: start: 20130513, end: 20130527
  11. RITUXIMAB [Suspect]
     Active Substance: RITUXIMAB
     Dosage: 1G D1 ON 07/JAN/2011 AND 1G D15 ON 24/JAN/2011
     Route: 065
  12. METHOTREXATE [Concomitant]
     Active Substance: METHOTREXATE
     Route: 065
     Dates: start: 20110718, end: 20110808
  13. METHOTREXATE [Concomitant]
     Active Substance: METHOTREXATE
     Route: 065
     Dates: start: 20150601, end: 20150615
  14. RITUXIMAB [Suspect]
     Active Substance: RITUXIMAB
     Dosage: 1G D1 ON 20/MAY/2010 AND 1G D15 ON 03/JUN/2010
     Route: 065
  15. METHOTREXATE [Concomitant]
     Active Substance: METHOTREXATE
     Route: 065
     Dates: start: 20100520, end: 20100603
  16. RITUXIMAB [Suspect]
     Active Substance: RITUXIMAB
     Dosage: 1G D1 ON 25/OCT/2012 AND 1G D15 ON 08/NOV/2012
     Route: 065
  17. RITUXIMAB [Suspect]
     Active Substance: RITUXIMAB
     Dosage: 1G D1 ON 25/NOV/2013 AND 1G D15 ON 09/DEC/2013
     Route: 065
  18. METHOTREXATE [Concomitant]
     Active Substance: METHOTREXATE
     Route: 065
     Dates: start: 20090930, end: 20091014
  19. RITUXIMAB [Suspect]
     Active Substance: RITUXIMAB
     Dosage: 1G D1 ON 18/JUL/2011 AND  1G D15 ON 08/AUG/2011
     Route: 065
  20. RITUXIMAB [Suspect]
     Active Substance: RITUXIMAB
     Dosage: 1G D1 ON 20/FEB/2012, AND 1G D15 ON 05/MAR/2012
     Route: 065
  21. METHOTREXATE [Concomitant]
     Active Substance: METHOTREXATE
     Route: 065
     Dates: start: 20110107, end: 20110124
  22. METHOTREXATE [Concomitant]
     Active Substance: METHOTREXATE
     Route: 065
     Dates: start: 20121025, end: 20121108

REACTIONS (6)
  - Erythema [Recovered/Resolved]
  - Neutropenia [Not Recovered/Not Resolved]
  - Lung infection [Recovered/Resolved]
  - Haemoptysis [Recovered/Resolved]
  - Prurigo [Recovered/Resolved]
  - Leukopenia [Not Recovered/Not Resolved]

NARRATIVE: CASE EVENT DATE: 200901
